FAERS Safety Report 6237834-7 (Version None)
Quarter: 2009Q2

REPORT INFORMATION
  Report Type: 
  Country: None (occurrence: None)
  Receive Date: 20090618
  Receipt Date: 20090610
  Transmission Date: 20091009
  Serious: Yes (Other)
  Sender: FDA-Public Use
  Company Number: KV200900644

PATIENT
  Age: 35 Year
  Sex: Female

DRUGS (1)
  1. PRIMACARE(PRENATAL VITAMIN) TABLET [Suspect]
     Dosage: ONE GELCAP, QD, ORAL
     Route: 048
     Dates: start: 20080101

REACTIONS (2)
  - ABORTION SPONTANEOUS [None]
  - DRUG EXPOSURE DURING PREGNANCY [None]
